FAERS Safety Report 9859978 (Version 2)
Quarter: 2014Q1

REPORT INFORMATION
  Report Type: Spontaneous
  Country: US (occurrence: US)
  Receive Date: 20140131
  Receipt Date: 20140218
  Transmission Date: 20141002
  Serious: No
  Sender: FDA-Public Use
  Company Number: US-PFIZER INC-2014027727

PATIENT
  Age: 67 Year
  Sex: Female
  Weight: 64.85 kg

DRUGS (3)
  1. LEVOTHYROXINE SODIUM [Suspect]
     Indication: THYROID DISORDER
     Dosage: UNK
  2. SYNTHROID [Suspect]
     Indication: THYROID DISORDER
     Dosage: UNK
  3. UNITHROID [Suspect]
     Indication: THYROID DISORDER
     Dosage: UNK

REACTIONS (8)
  - Pain [Unknown]
  - Headache [Unknown]
  - Arthralgia [Unknown]
  - Bone pain [Unknown]
  - Dyspnoea [Unknown]
  - Feeling of body temperature change [Unknown]
  - Weight increased [Unknown]
  - Drug intolerance [Unknown]
